FAERS Safety Report 16099853 (Version 1)
Quarter: 2019Q1

REPORT INFORMATION
  Report Type: Spontaneous
  Country: IT (occurrence: IT)
  Receive Date: 20190321
  Receipt Date: 20190321
  Transmission Date: 20190418
  Serious: Yes (Other)
  Sender: FDA-Public Use
  Company Number: IT-009507513-1903ITA006030

PATIENT
  Age: 81 Year
  Sex: Female

DRUGS (2)
  1. MIRTAZAPINE. [Suspect]
     Active Substance: MIRTAZAPINE
     Dosage: 600 MG, UNK
  2. CONTROL (LORAZEPAM) [Suspect]
     Active Substance: LORAZEPAM
     Dosage: 75 MG, UNK
     Route: 048

REACTIONS (2)
  - Sopor [Unknown]
  - Confusional state [Unknown]

NARRATIVE: CASE EVENT DATE: 20190118
